FAERS Safety Report 12470971 (Version 1)
Quarter: 2016Q2

REPORT INFORMATION
  Report Type: Spontaneous
  Country: US (occurrence: None)
  Receive Date: 20160615
  Receipt Date: 20160615
  Transmission Date: 20160815
  Serious: No
  Sender: FDA-Public Use
  Company Number: None

PATIENT
  Age: 54 Year
  Sex: Female

DRUGS (4)
  1. PROGESTERONE. [Concomitant]
     Active Substance: PROGESTERONE
  2. MULTI-VITAMIN [Concomitant]
     Active Substance: .ALPHA.-TOCOPHEROL ACETATE, DL-\ASCORBIC ACID\CYANOCOBALAMIN\FLUORIDE ION\FOLIC ACID\NIACIN\PYRIDOXINE\RIBOFLAVIN\THIAMINE\VITAMIN A\VITAMIN D
  3. COSENTYX [Suspect]
     Active Substance: SECUKINUMAB
     Indication: PSORIASIS
     Route: 058
     Dates: start: 20160406
  4. ESTRIOL [Concomitant]
     Active Substance: ESTRIOL

REACTIONS (3)
  - Influenza like illness [None]
  - Nasopharyngitis [None]
  - Drug dose omission [None]

NARRATIVE: CASE EVENT DATE: 201605
